FAERS Safety Report 24815834 (Version 2)
Quarter: 2025Q1

REPORT INFORMATION
  Report Type: Report from Study
  Country: US (occurrence: US)
  Receive Date: 20250107
  Receipt Date: 20250117
  Transmission Date: 20250409
  Serious: Yes (Other)
  Sender: IPSEN BIOPHARMACEUTICALS, INC.
  Company Number: US-IPSEN Group, Research and Development-2025-00446

PATIENT
  Age: 3 Year
  Sex: Female

DRUGS (1)
  1. DYSPORT [Suspect]
     Active Substance: ABOBOTULINUMTOXINA
     Indication: Muscle spasticity
     Route: 030
     Dates: start: 20240530, end: 20240530

REACTIONS (4)
  - Mastication disorder [Recovered/Resolved]
  - Asthenia [Recovered/Resolved]
  - Dysphagia [Recovered/Resolved]
  - Muscular weakness [Recovered/Resolved]

NARRATIVE: CASE EVENT DATE: 20240601
